FAERS Safety Report 21508339 (Version 1)
Quarter: 2022Q4

REPORT INFORMATION
  Report Type: Spontaneous
  Country: US (occurrence: None)
  Receive Date: 20221025
  Receipt Date: 20221025
  Transmission Date: 20230113
  Serious: Yes (Hospitalization)
  Sender: FDA-Public Use
  Company Number: None

PATIENT
  Sex: Female

DRUGS (13)
  1. KESIMPTA [Suspect]
     Active Substance: OFATUMUMAB
  2. ADDERALL TAB [Concomitant]
  3. BACLOFEN TAB [Concomitant]
  4. CELECOXIB CAP [Concomitant]
  5. GABAPENTIN TAB [Concomitant]
  6. GLATIRAMER INJ [Concomitant]
  7. METFORMIN TAB [Concomitant]
  8. MODAFINIL TAB [Concomitant]
  9. NORCO TAB [Concomitant]
  10. OTEZLA [Concomitant]
     Active Substance: APREMILAST
  11. OTEZLA [Concomitant]
     Active Substance: APREMILAST
  12. PARAOXETINE [Concomitant]
  13. ZOFLOFT TAB [Concomitant]

REACTIONS (6)
  - Infection [None]
  - Depressed mood [None]
  - Depression [None]
  - Feeling of despair [None]
  - Anhedonia [None]
  - COVID-19 [None]
